FAERS Safety Report 8458864-0 (Version None)
Quarter: 2012Q2

REPORT INFORMATION
  Report Type: 
  Country: None (occurrence: None)
  Receive Date: 20120622
  Receipt Date: 20120612
  Transmission Date: 20120825
  Serious: Yes (Other)
  Sender: FDA-Public Use
  Company Number: GB-ELI_LILLY_AND_COMPANY-GB201204009179

PATIENT
  Sex: Female

DRUGS (5)
  1. OLANZAPINE [Suspect]
     Dosage: 300 MG, 2/W
     Dates: start: 20120401
  2. OLANZAPINE [Suspect]
     Indication: PSYCHOTIC DISORDER
     Dosage: 210 MG, UNKNOWN
     Dates: start: 20120216, end: 20120401
  3. IBUPROFEN [Concomitant]
     Dosage: UNK
  4. PROCYCLIDINE HYDROCHLORIDE 2MG TAB [Concomitant]
     Dosage: 5MG,
  5. ADCAL D3 [Concomitant]
     Dosage: 1, DF
     Route: 048

REACTIONS (1)
  - INJECTION SITE ABSCESS [None]
